FAERS Safety Report 8804561 (Version 3)
Quarter: 2012Q4

REPORT INFORMATION
  Report Type: 
  Country: JP (occurrence: JP)
  Receive Date: 20120923
  Receipt Date: 20121101
  Transmission Date: 20130627
  Serious: Yes (Other)
  Sender: FDA-Public Use
  Company Number: JP-MERCK-1208JPN012651

PATIENT
  Age: 80 Year
  Sex: Male

DRUGS (11)
  1. REFLEX [Suspect]
     Indication: DEPRESSION
     Dosage: 15 mg, qd
     Route: 048
     Dates: start: 20120807, end: 20120817
  2. REFLEX [Suspect]
     Dosage: 30 mg, qd
     Route: 048
     Dates: start: 20120818, end: 20120826
  3. ETIZOLAM [Concomitant]
     Indication: PRODUCT USED FOR UNKNOWN INDICATION
     Dosage: 3 mg, UNK
     Route: 048
     Dates: start: 20061010
  4. SILODOSIN [Concomitant]
     Indication: PRODUCT USED FOR UNKNOWN INDICATION
     Dosage: 8 mg, qd
     Route: 048
     Dates: start: 20100720
  5. CERNITIN POLLEN EXTRACT [Concomitant]
     Indication: PRODUCT USED FOR UNKNOWN INDICATION
     Dosage: 4 DF, qd
     Route: 048
     Dates: start: 20100720
  6. TIARAMIDE HYDROCHLORIDE [Concomitant]
     Indication: PRODUCT USED FOR UNKNOWN INDICATION
     Dosage: 300 mg, UNK
     Route: 048
     Dates: start: 20120712
  7. SENNOSIDES [Concomitant]
     Indication: PRODUCT USED FOR UNKNOWN INDICATION
     Dosage: 2 DF, qd
     Route: 048
     Dates: start: 20120425
  8. TELMISARTAN [Concomitant]
     Indication: PRODUCT USED FOR UNKNOWN INDICATION
     Dosage: 40 mg, qd
     Route: 048
     Dates: start: 20100720
  9. AMLODIPINE BESYLATE [Concomitant]
     Indication: PRODUCT USED FOR UNKNOWN INDICATION
     Dosage: 2.5 mg, UNK
     Route: 048
     Dates: start: 20061010
  10. DILTIAZEM HYDROCHLORIDE [Concomitant]
     Indication: PRODUCT USED FOR UNKNOWN INDICATION
     Dosage: 2 DF, qd
     Route: 048
     Dates: start: 20061010
  11. ZOLPIDEM TARTRATE [Concomitant]
     Indication: PRODUCT USED FOR UNKNOWN INDICATION
     Dosage: 10 mg, UNK
     Route: 048
     Dates: start: 20061010

REACTIONS (1)
  - Convulsion [Recovered/Resolved]
